FAERS Safety Report 8805943 (Version 1)
Quarter: 2012Q4

REPORT INFORMATION
  Report Type: Spontaneous
  Country: CN (occurrence: None)
  Receive Date: 20120918
  Receipt Date: 20120918
  Transmission Date: 20130627
  Serious: Yes (Other)
  Sender: FDA-Public Use
  Company Number: VAL_00851_2012

PATIENT
  Sex: Female
  Weight: 56 kg

DRUGS (12)
  1. ROCALTROL [Suspect]
     Indication: RENAL TRANSPLANT
     Dosage: (DF Oral)
     Route: 048
  2. CELLCEPT [Suspect]
     Indication: RENAL TRANSPLANT
     Dosage: (500 mg in the morning and 750mg in the evening Oral)
     Route: 048
     Dates: start: 20051110
  3. SANDIMMUN NEORAL [Suspect]
     Indication: RENAL TRANSPLANT
     Route: 048
     Dates: start: 20051110
  4. PREDNISONE [Concomitant]
  5. CALCIUM CARBONATE [Concomitant]
  6. BAYASPIRIN [Concomitant]
  7. URSODEOXYCHOLIC ACID [Concomitant]
  8. LIPITOR [Concomitant]
  9. GLUCUROLACTONE [Concomitant]
  10. VITAMINA C /00008001/ [Concomitant]
  11. VITAMIN B2 /00154901/ [Concomitant]
  12. JINSHUIBAO-CORDYCEPS [Concomitant]

REACTIONS (9)
  - Constipation [None]
  - Haemorrhoids [None]
  - Cataract [None]
  - Cerebral artery embolism [None]
  - Gastritis erosive [None]
  - Weight increased [None]
  - Memory impairment [None]
  - Nasopharyngitis [None]
  - Anal fissure [None]
